FAERS Safety Report 23948498 (Version 1)
Quarter: 2024Q2

REPORT INFORMATION
  Report Type: Spontaneous
  Country: JP (occurrence: JP)
  Receive Date: 20240607
  Receipt Date: 20240607
  Transmission Date: 20240715
  Serious: Yes (Other)
  Sender: FDA-Public Use
  Company Number: JP-AMGEN-JPNSP2024109741

PATIENT
  Sex: Female

DRUGS (3)
  1. LUMAKRAS [Suspect]
     Active Substance: SOTORASIB
     Indication: K-ras gene mutation
     Dosage: 960 MILLIGRAM, QD
     Route: 048
  2. LUMAKRAS [Suspect]
     Active Substance: SOTORASIB
     Indication: Non-small cell lung cancer
     Dosage: 480 MILLIGRAM, QD, DOSE REDUCED
     Route: 048
  3. LUMAKRAS [Suspect]
     Active Substance: SOTORASIB
     Dosage: 240 MILLIGRAM, QD, DOSE REDUCED
     Route: 048

REACTIONS (2)
  - Non-small cell lung cancer [Unknown]
  - Hepatic function abnormal [Recovering/Resolving]
